FAERS Safety Report 13333248 (Version 1)
Quarter: 2017Q1

REPORT INFORMATION
  Report Type: Spontaneous
  Country: SE (occurrence: SE)
  Receive Date: 20170313
  Receipt Date: 20170313
  Transmission Date: 20170428
  Serious: Yes (Life-Threatening, Hospitalization, Other)
  Sender: FDA-Public Use
  Company Number: SE-B.I. PHARMACEUTICALS,INC./RIDGEFIELD-2017-BI-014112

PATIENT
  Age: 57 Year
  Sex: Male

DRUGS (3)
  1. SIFROL [Suspect]
     Active Substance: PRAMIPEXOLE
     Dosage: FORM STRENGTH: 2.1 MG X1
     Route: 065
     Dates: start: 20161014, end: 20170307
  2. SIFROL [Suspect]
     Active Substance: PRAMIPEXOLE
     Indication: PARKINSON^S DISEASE
     Route: 065
     Dates: start: 201508, end: 20161013
  3. SIFROL [Suspect]
     Active Substance: PRAMIPEXOLE
     Route: 065
     Dates: start: 20170308

REACTIONS (4)
  - Hypercapnia [Unknown]
  - Acute pulmonary oedema [Unknown]
  - Pulmonary oedema [Unknown]
  - Cardiac failure [Unknown]

NARRATIVE: CASE EVENT DATE: 201702
